FAERS Safety Report 13463962 (Version 1)
Quarter: 2017Q2

REPORT INFORMATION
  Report Type: Spontaneous
  Country: US (occurrence: US)
  Receive Date: 20170420
  Receipt Date: 20170420
  Transmission Date: 20170830
  Serious: Yes (Hospitalization, Other)
  Sender: FDA-Public Use
  Company Number: US-ROCHE-672502

PATIENT
  Age: 16 Year
  Sex: Male
  Weight: 56.7 kg

DRUGS (1)
  1. ACCUTANE [Suspect]
     Active Substance: ISOTRETINOIN
     Indication: ACNE
     Dosage: DOSE: 40 MG ALTERNATING WITH 80 MG DAILY
     Route: 048
     Dates: start: 20020321, end: 20021004

REACTIONS (10)
  - Inflammatory bowel disease [Unknown]
  - Blood triglycerides increased [Unknown]
  - Dry skin [Unknown]
  - Depression [Unknown]
  - Blood alkaline phosphatase increased [Recovered/Resolved]
  - Colitis [Unknown]
  - Proctitis [Unknown]
  - Lip dry [Unknown]
  - Blood cholesterol increased [Unknown]
  - Neck pain [Unknown]

NARRATIVE: CASE EVENT DATE: 20020326
